FAERS Safety Report 8318737-0 (Version None)
Quarter: 2012Q2

REPORT INFORMATION
  Report Type: 
  Country: None (occurrence: None)
  Receive Date: 20120427
  Receipt Date: 20120424
  Transmission Date: 20120825
  Serious: Yes (Life-Threatening, Hospitalization, Other)
  Sender: FDA-Public Use
  Company Number: JP-PFIZER INC-2011273701

PATIENT
  Age: 84 Year
  Sex: Female

DRUGS (4)
  1. ALDACTONE [Interacting]
     Indication: CARDIAC FAILURE CHRONIC
  2. ALISKIREN [Interacting]
     Dosage: 150 MG PER DAY
  3. ALDACTONE [Suspect]
     Indication: HYPERTENSION
     Dosage: 25 MG, DAILY
     Route: 048
  4. MICARDIS [Interacting]
     Indication: HYPERTENSION
     Route: 048

REACTIONS (6)
  - DRUG INTERACTION [None]
  - HYPERKALAEMIA [None]
  - METABOLIC ACIDOSIS [None]
  - BLOOD CREATININE INCREASED [None]
  - CERVICAL VERTEBRAL FRACTURE [None]
  - ELECTROCARDIOGRAM QRS COMPLEX PROLONGED [None]
